FAERS Safety Report 26187337 (Version 1)
Quarter: 2025Q4

REPORT INFORMATION
  Report Type: Spontaneous
  Country: US (occurrence: None)
  Receive Date: 20251222
  Receipt Date: 20251222
  Transmission Date: 20260118
  Serious: Yes (Other)
  Sender: FDA-CTU
  Company Number: None

PATIENT
  Sex: Male

DRUGS (1)
  1. CIMZIA [Suspect]
     Active Substance: CERTOLIZUMAB PEGOL
     Dosage: 400 MG/MG EVERY 2 WEEKS SUBCUTANEOUS
     Route: 058
     Dates: start: 20251002, end: 20251030

REACTIONS (2)
  - Pruritus [None]
  - Urticaria [None]
